FAERS Safety Report 7285477-9 (Version None)
Quarter: 2011Q1

REPORT INFORMATION
  Report Type: 
  Country: None (occurrence: None)
  Receive Date: 20110210
  Receipt Date: 20110201
  Transmission Date: 20110831
  Serious: Yes (Hospitalization)
  Sender: FDA-Public Use
  Company Number: JP-NOVOPROD-322281

PATIENT
  Age: 74 Year
  Sex: Male

DRUGS (6)
  1. VICTOZA [Suspect]
     Indication: TYPE 2 DIABETES MELLITUS
     Dosage: 0.3 MG, QD
     Route: 058
     Dates: start: 20100831
  2. VICTOZA [Suspect]
     Dosage: 0.6 MG, QD
     Route: 058
     Dates: start: 20100907
  3. BONALON [Concomitant]
     Dosage: 5 MG, QD
     Route: 048
  4. VICTOZA [Suspect]
     Dosage: 0.9 MG, QD
     Route: 058
     Dates: start: 20101022, end: 20101127
  5. AMARYL [Concomitant]
     Dosage: 0.5 MG, QD
     Route: 048
  6. AMLODIPINE                         /00972402/ [Concomitant]
     Dosage: 25 MG, QD
     Route: 048
     Dates: start: 20100401

REACTIONS (1)
  - PANCREATITIS [None]
